FAERS Safety Report 8437227-8 (Version None)
Quarter: 2012Q2

REPORT INFORMATION
  Report Type: 
  Country: None (occurrence: None)
  Receive Date: 20120614
  Receipt Date: 20120228
  Transmission Date: 20120825
  Serious: No
  Sender: FDA-Public Use
  Company Number: US-AMGEN-USASP2011016350

PATIENT
  Age: 41 Year
  Sex: Female

DRUGS (3)
  1. ZOLADEX [Concomitant]
     Dosage: UNK
     Dates: start: 20110315
  2. AREDIA [Concomitant]
  3. XGEVA [Suspect]
     Indication: METASTASES TO BONE
     Dosage: 120 MG, Q4WK
     Dates: start: 20110315

REACTIONS (6)
  - ABDOMINAL PAIN [None]
  - ABDOMINAL DISTENSION [None]
  - SWELLING [None]
  - PRURITUS [None]
  - DIARRHOEA [None]
  - BONE PAIN [None]
